FAERS Safety Report 21047199 (Version 3)
Quarter: 2022Q4

REPORT INFORMATION
  Report Type: Spontaneous
  Country: CA (occurrence: CA)
  Receive Date: 20220706
  Receipt Date: 20221201
  Transmission Date: 20230113
  Serious: Yes (Hospitalization, Other)
  Sender: FDA-Public Use
  Company Number: CA-ROCHE-2571987

PATIENT
  Age: 22 Year
  Sex: Male

DRUGS (17)
  1. CLONAZEPAM [Suspect]
     Active Substance: CLONAZEPAM
     Indication: Panic attack
     Dates: start: 20200408
  2. CLONAZEPAM [Suspect]
     Active Substance: CLONAZEPAM
     Indication: Panic attack
  3. OCREVUS [Suspect]
     Active Substance: OCRELIZUMAB
     Indication: Relapsing-remitting multiple sclerosis
     Dosage: 300 MG AT DAY 0, 14 THEN 600 MG Q6M
     Route: 042
     Dates: start: 20200313
  4. PRAMIPEXOLE [Suspect]
     Active Substance: PRAMIPEXOLE
     Indication: Product used for unknown indication
     Dates: start: 20201028
  5. PREDNISONE [Suspect]
     Active Substance: PREDNISONE
     Indication: Product used for unknown indication
  6. LYRICA [Suspect]
     Active Substance: PREGABALIN
     Indication: Product used for unknown indication
  7. VYVANSE [Suspect]
     Active Substance: LISDEXAMFETAMINE DIMESYLATE
  8. PREGABALIN [Suspect]
     Active Substance: PREGABALIN
  9. TRAMADOL [Suspect]
     Active Substance: TRAMADOL
  10. HYDROMORPHONE [Suspect]
     Active Substance: HYDROMORPHONE
  11. DIAZEPAM [Suspect]
     Active Substance: DIAZEPAM
  12. ADDERALL [Suspect]
     Active Substance: AMPHETAMINE ASPARTATE\AMPHETAMINE SULFATE\DEXTROAMPHETAMINE SACCHARATE\DEXTROAMPHETAMINE SULFATE
     Dosage: 50 MG
  13. VITAMIN B6 [Concomitant]
     Active Substance: PYRIDOXINE HYDROCHLORIDE
  14. VITAMIN C [Concomitant]
     Active Substance: ASCORBIC ACID
  15. BACLOFEN [Concomitant]
     Active Substance: BACLOFEN
  16. GRAVOL [Concomitant]
     Active Substance: DIMENHYDRINATE
  17. PANTOPRAZOLE [Concomitant]
     Active Substance: PANTOPRAZOLE

REACTIONS (44)
  - Blindness [Unknown]
  - Intentional self-injury [Unknown]
  - Sleep disorder [Not Recovered/Not Resolved]
  - Infusion related reaction [Recovered/Resolved]
  - Fatigue [Not Recovered/Not Resolved]
  - Diplopia [Not Recovered/Not Resolved]
  - Skin laceration [Recovered/Resolved]
  - Tinea pedis [Unknown]
  - Feeling abnormal [Unknown]
  - Depression [Unknown]
  - Panic attack [Unknown]
  - Hypoaesthesia [Unknown]
  - Nasopharyngitis [Recovered/Resolved]
  - Visual impairment [Recovered/Resolved]
  - Pain [Not Recovered/Not Resolved]
  - Anxiety [Unknown]
  - Acne [Not Recovered/Not Resolved]
  - Muscle spasms [Not Recovered/Not Resolved]
  - Restless legs syndrome [Not Recovered/Not Resolved]
  - Agitation [Unknown]
  - Aggression [Unknown]
  - Neuralgia [Unknown]
  - Sedation [Unknown]
  - Dizziness [Unknown]
  - Dry mouth [Unknown]
  - Malaise [Unknown]
  - Nausea [Unknown]
  - Constipation [Unknown]
  - Pain in extremity [Not Recovered/Not Resolved]
  - Back pain [Not Recovered/Not Resolved]
  - Muscle spasticity [Not Recovered/Not Resolved]
  - Seizure [Unknown]
  - Feeling abnormal [Recovered/Resolved]
  - Acne [Recovering/Resolving]
  - Skin abrasion [Not Recovered/Not Resolved]
  - Penis injury [Recovering/Resolving]
  - Localised infection [Recovered/Resolved]
  - Toxicity to various agents [Recovered/Resolved]
  - Disability [Recovered/Resolved]
  - Dehydration [Unknown]
  - Attention deficit hyperactivity disorder [Unknown]
  - Post-traumatic stress disorder [Unknown]
  - Drug hypersensitivity [Unknown]
  - Haematochezia [Unknown]

NARRATIVE: CASE EVENT DATE: 20200313
